FAERS Safety Report 23141639 (Version 1)
Quarter: 2023Q4

REPORT INFORMATION
  Report Type: Spontaneous
  Country: CA (occurrence: CA)
  Receive Date: 20231103
  Receipt Date: 20231103
  Transmission Date: 20240110
  Serious: Yes (Hospitalization, Other)
  Sender: FDA-Public Use
  Company Number: CA-BAXTER-2023BAX032568

PATIENT
  Age: 75 Year
  Sex: Male

DRUGS (1)
  1. EXTRANEAL [Suspect]
     Active Substance: CALCIUM CHLORIDE\ICODEXTRIN\MAGNESIUM CHLORIDE\SODIUM CHLORIDE\SODIUM LACTATE
     Dosage: 1 (DETAILS NOT REPORTED) DAILY OR 1 (DETAILS NOT REPORTED) EVERY OTHER DAY, AT NIGHT
     Route: 033

REACTIONS (2)
  - Bacteraemia [Unknown]
  - Catheter site infection [Not Recovered/Not Resolved]

NARRATIVE: CASE EVENT DATE: 20230717
